FAERS Safety Report 9446037 (Version 2)
Quarter: 2013Q4

REPORT INFORMATION
  Report Type: Spontaneous
  Country: JP (occurrence: JP)
  Receive Date: 20130807
  Receipt Date: 20131227
  Transmission Date: 20140711
  Serious: Yes (Other)
  Sender: FDA-Public Use
  Company Number: JP-009507513-1308JPN002478

PATIENT
  Sex: 0

DRUGS (2)
  1. RIBAVIRIN [Suspect]
     Indication: CHRONIC HEPATITIS C
     Dosage: 600-1000 MICROGRAM
     Route: 048
  2. PEGINTERFERON ALFA-2B [Suspect]
     Dosage: 1.5 MICROGRAM PER KILOGRAM OF BODY WEIGHT, 60-120 MICROGRAM
     Route: 058

REACTIONS (1)
  - Hepatocellular carcinoma [Unknown]
